FAERS Safety Report 4806130-4 (Version None)
Quarter: 2005Q4

REPORT INFORMATION
  Report Type: 
  Country: None (occurrence: None)
  Receive Date: 20051019
  Receipt Date: 20051019
  Transmission Date: 20060501
  Serious: No
  Sender: FDA-Public Use
  Company Number: None

PATIENT
  Age: 9 Year
  Sex: Female
  Weight: 31.7518 kg

DRUGS (1)
  1. EQUATE CHILDREN'S ASPIRIN 81 MG EQUATE [Suspect]
     Indication: HEADACHE
     Dosage: 5 TABLETS ONCE PO
     Route: 048
     Dates: start: 20051017, end: 20051017

REACTIONS (2)
  - ACCIDENTAL EXPOSURE [None]
  - MEDICATION ERROR [None]
